FAERS Safety Report 5608807-X (Version None)
Quarter: 2008Q1

REPORT INFORMATION
  Report Type: 
  Country: None (occurrence: None)
  Receive Date: 20080129
  Receipt Date: 20080129
  Transmission Date: 20080703
  Serious: Yes (Hospitalization)
  Sender: FDA-Public Use
  Company Number: None

PATIENT
  Sex: Female
  Weight: 64.1 kg

DRUGS (3)
  1. FLUOROURACIL [Suspect]
     Indication: NASOPHARYNGEAL CANCER
     Dosage: 600MG/M2 IV QD
     Route: 042
     Dates: start: 20080120, end: 20080125
  2. HYDREA [Suspect]
     Indication: NASOPHARYNGEAL CANCER
     Dosage: 500MG PO BID
     Route: 048
     Dates: start: 20080120, end: 20080125
  3. CETUXIMAB [Suspect]
     Indication: NASOPHARYNGEAL CANCER
     Dosage: 250MG/M2 IV QW
     Route: 042
     Dates: start: 20071128

REACTIONS (2)
  - NAUSEA [None]
  - VOMITING [None]
